FAERS Safety Report 10101646 (Version 3)
Quarter: 2014Q2

REPORT INFORMATION
  Report Type: Spontaneous
  Country: BR (occurrence: BR)
  Receive Date: 20140424
  Receipt Date: 20140507
  Transmission Date: 20141212
  Serious: Yes (Hospitalization)
  Sender: FDA-Public Use
  Company Number: BR-SANOFI-AVENTIS-2013SA036802

PATIENT
  Age: 5 Year
  Sex: Male
  Weight: 22 kg

DRUGS (4)
  1. LANTUS [Suspect]
     Indication: TYPE 1 DIABETES MELLITUS
     Route: 058
     Dates: start: 2013
  2. CLIKSTAR [Concomitant]
     Indication: DEVICE THERAPY
  3. CLIKSTAR [Concomitant]
     Indication: DEVICE THERAPY
  4. HUMALOG [Concomitant]
     Indication: TYPE 1 DIABETES MELLITUS
     Dosage: DOE: DAILY IU^S ACCORDING TO THE COUNT OF CARBOHYDRATES
     Route: 058
     Dates: start: 2013

REACTIONS (5)
  - Tooth infection [Recovered/Resolved]
  - Hypoglycaemia [Recovered/Resolved]
  - Hunger [Recovered/Resolved]
  - Lethargy [Recovered/Resolved]
  - Off label use [Unknown]
